FAERS Safety Report 8275874-7 (Version None)
Quarter: 2012Q2

REPORT INFORMATION
  Report Type: 
  Country: None (occurrence: None)
  Receive Date: 20120412
  Receipt Date: 20120404
  Transmission Date: 20120825
  Serious: Yes (Hospitalization)
  Sender: FDA-Public Use
  Company Number: JP-SANOFI-AVENTIS-2011SA074346

PATIENT
  Age: 60 Year
  Sex: Female
  Weight: 70.1 kg

DRUGS (17)
  1. GLUCOBAY [Concomitant]
     Route: 048
  2. HERBAL PREPARATION [Concomitant]
     Route: 048
     Dates: start: 20090810
  3. PLAVIX [Suspect]
     Dosage: MAINTENANCE TREATMENT
     Route: 065
     Dates: start: 20090801
  4. SELBEX [Concomitant]
     Route: 048
  5. EPADEL [Concomitant]
     Route: 048
     Dates: start: 20090731
  6. KINEDAK [Concomitant]
     Route: 048
  7. PLAVIX [Suspect]
     Dosage: LOADING TREATMENT
     Route: 065
     Dates: start: 20090731, end: 20090731
  8. AMLODIPINE BESYLATE [Concomitant]
     Route: 048
  9. TRICHLORMETHIAZIDE [Concomitant]
     Route: 048
  10. ASPIRIN [Concomitant]
     Route: 048
     Dates: start: 20090731
  11. FLUTICASONE PROPIONATE [Concomitant]
     Dosage: INHALER
     Route: 055
     Dates: start: 20090729
  12. LANTUS [Concomitant]
     Dosage: DOSE-20 UNITS- UNKNOWN DOSE:20 UNIT(S)
     Route: 041
     Dates: start: 20090723
  13. ATORVASTATIN [Concomitant]
     Route: 048
     Dates: start: 20090807
  14. LOSARTAN POTASSIUM [Concomitant]
     Route: 048
  15. MONTELUKAST SODIUM [Concomitant]
     Route: 048
     Dates: start: 20090729
  16. HUMALOG [Concomitant]
     Dosage: DOSE- 8 UNITS UNKNOWN DOSE:8 UNIT(S)
     Route: 041
     Dates: start: 20090727
  17. ALLOPURINOL [Concomitant]
     Route: 048

REACTIONS (2)
  - GLYCOSYLATED HAEMOGLOBIN INCREASED [None]
  - BLOOD GLUCOSE INCREASED [None]
